FAERS Safety Report 6371492-6 (Version None)
Quarter: 2009Q3

REPORT INFORMATION
  Report Type: 
  Country: None (occurrence: None)
  Receive Date: 20090923
  Receipt Date: 20070813
  Transmission Date: 20100115
  Serious: Yes (Other)
  Sender: FDA-Public Use
  Company Number: US-ASTRAZENECA-2007UW12060

PATIENT
  Age: 17147 Day
  Sex: Female
  Weight: 67.1 kg

DRUGS (13)
  1. SEROQUEL [Suspect]
     Indication: INSOMNIA
     Dosage: 25 MG TO 100 MG
     Route: 048
     Dates: start: 20000101, end: 20061231
  2. SEROQUEL [Suspect]
     Indication: AGITATION
     Dosage: 25 MG TO 100 MG
     Route: 048
     Dates: start: 20000101, end: 20061231
  3. SEROQUEL [Suspect]
     Dosage: 25 MG TO 300 MG IN A FLUCTUATING DOSE
     Route: 048
     Dates: start: 20020816, end: 20050101
  4. SEROQUEL [Suspect]
     Dosage: 25 MG TO 300 MG IN A FLUCTUATING DOSE
     Route: 048
     Dates: start: 20020816, end: 20050101
  5. STELAZINE [Concomitant]
  6. THORAZINE [Concomitant]
  7. VASOTEC [Concomitant]
     Indication: HYPERTENSION
     Dosage: 20 MG TO 40 MG
     Dates: start: 20000218
  8. TOPROL-XL [Concomitant]
     Dates: start: 20060911
  9. ASPIRIN [Concomitant]
     Dates: start: 20021212
  10. LIPITOR [Concomitant]
     Dates: start: 20060911
  11. ZOLOFT [Concomitant]
     Dates: start: 20001106
  12. WELLBUTRIN [Concomitant]
     Indication: DEPRESSION
     Dosage: 100 MG TO 300 MG
     Dates: start: 20021212, end: 20050101
  13. DEPAKOTE [Concomitant]
     Indication: MOOD SWINGS
     Dosage: 500 MG TO 1000 MG
     Dates: start: 20001106, end: 20050101

REACTIONS (2)
  - DIABETES MELLITUS INADEQUATE CONTROL [None]
  - TYPE 2 DIABETES MELLITUS [None]
